FAERS Safety Report 21569842 (Version 2)
Quarter: 2022Q4

REPORT INFORMATION
  Report Type: Spontaneous
  Country: US (occurrence: US)
  Receive Date: 20221109
  Receipt Date: 20221111
  Transmission Date: 20230113
  Serious: No
  Sender: FDA-Public Use
  Company Number: US-GLAXOSMITHKLINE-USCH2022042225

PATIENT
  Age: 73 Year
  Sex: Male

DRUGS (1)
  1. VOLTAREN [Suspect]
     Active Substance: DICLOFENAC SODIUM
     Indication: Arthritis
     Dosage: 2 DOSAGE FORM, QD
     Route: 065
     Dates: start: 2022

REACTIONS (2)
  - Wrong technique in product usage process [Recovering/Resolving]
  - Off label use [Recovering/Resolving]
